FAERS Safety Report 20683427 (Version 1)
Quarter: 2022Q2

REPORT INFORMATION
  Report Type: Spontaneous
  Country: PL (occurrence: PL)
  Receive Date: 20220407
  Receipt Date: 20220407
  Transmission Date: 20220721
  Serious: Yes (Other)
  Sender: FDA-Public Use
  Company Number: PL-PBT-004450

PATIENT
  Age: 33 Year
  Sex: Female

DRUGS (6)
  1. TACROLIMUS [Suspect]
     Active Substance: TACROLIMUS
     Indication: Polycystic ovaries
     Route: 048
  2. ASPIRIN [Suspect]
     Active Substance: ASPIRIN
     Indication: Polycystic ovaries
     Route: 048
  3. ENOXAPARIN [Suspect]
     Active Substance: ENOXAPARIN
     Indication: Polycystic ovaries
     Route: 058
  4. METFORMIN [Suspect]
     Active Substance: METFORMIN HYDROCHLORIDE
     Indication: Polycystic ovaries
     Route: 048
  5. INOSITOL [Suspect]
     Active Substance: INOSITOL
     Indication: Polycystic ovaries
     Route: 048
  6. ACETYLCYSTEINE [Suspect]
     Active Substance: ACETYLCYSTEINE
     Indication: Polycystic ovaries
     Route: 048

REACTIONS (3)
  - COVID-19 [Unknown]
  - Exposure during pregnancy [Unknown]
  - Product use in unapproved indication [Unknown]
